FAERS Safety Report 5194473-7 (Version None)
Quarter: 2006Q4

REPORT INFORMATION
  Report Type: 
  Country: None (occurrence: None)
  Receive Date: 20061221
  Receipt Date: 20061207
  Transmission Date: 20070319
  Serious: Yes (Hospitalization)
  Sender: FDA-Public Use
  Company Number: URSO-2006-052

PATIENT
  Age: 49 Year
  Sex: Male

DRUGS (2)
  1. URSODIOL [Suspect]
     Indication: LIVER DISORDER
     Dosage: 300 MG, PO
     Route: 048
     Dates: start: 20060710, end: 20060801
  2. COSPANON (FLOPROPIONE) [Concomitant]

REACTIONS (1)
  - HEPATIC FUNCTION ABNORMAL [None]
